FAERS Safety Report 5576649-X (Version None)
Quarter: 2007Q4

REPORT INFORMATION
  Report Type: 
  Country: None (occurrence: None)
  Receive Date: 20071130
  Receipt Date: 20070807
  Transmission Date: 20080405
  Serious: No
  Sender: FDA-Public Use
  Company Number: US200708001697

PATIENT
  Age: 73 Year
  Sex: Male
  Weight: 127 kg

DRUGS (3)
  1. BYETTA [Suspect]
     Indication: TYPE 2 DIABETES MELLITUS
     Dosage: 10 UG, SUBCUTANEOUS
     Route: 058
     Dates: start: 20070619, end: 20070803
  2. NOVOLIN R [Concomitant]
  3. NOVOLIN NPH (INSULIN HUMAN INJECTION, ISOPHANE) [Concomitant]

REACTIONS (6)
  - BLOOD GLUCOSE DECREASED [None]
  - CONTUSION [None]
  - DIZZINESS [None]
  - FALL [None]
  - MALAISE [None]
  - PAIN [None]
